FAERS Safety Report 24744588 (Version 2)
Quarter: 2025Q1

REPORT INFORMATION
  Report Type: Spontaneous
  Country: FI (occurrence: FI)
  Receive Date: 20241217
  Receipt Date: 20250107
  Transmission Date: 20250409
  Serious: Yes (Hospitalization, Other)
  Sender: ABBVIE
  Company Number: FI-ABBVIE-6044090

PATIENT
  Age: 68 Year
  Sex: Female

DRUGS (2)
  1. OZURDEX [Suspect]
     Active Substance: DEXAMETHASONE
     Indication: Macular oedema
     Route: 031
     Dates: start: 20240627, end: 20241015
  2. OZURDEX [Suspect]
     Active Substance: DEXAMETHASONE
     Indication: Retinal vein occlusion

REACTIONS (2)
  - Cataract traumatic [Recovered/Resolved]
  - Implant site injury [Recovered/Resolved]

NARRATIVE: CASE EVENT DATE: 20240101
